FAERS Safety Report 8580680 (Version 5)
Quarter: 2013Q3

REPORT INFORMATION
  Report Type: Spontaneous
  Country: US (occurrence: US)
  Receive Date: 20120525
  Receipt Date: 20130802
  Transmission Date: 20140515
  Serious: Yes (Other)
  Sender: FDA-Public Use
  Company Number: US-ROCHE-1006251

PATIENT
  Age: 11 Year
  Sex: Male
  Weight: 84.44 kg

DRUGS (5)
  1. ACCUTANE [Suspect]
     Indication: ACNE
     Route: 048
     Dates: start: 200011, end: 200102
  2. ACCUTANE [Suspect]
     Route: 048
     Dates: start: 20021230, end: 200305
  3. SULFAMETHOXAZOL [Concomitant]
  4. ACLOVATE [Concomitant]
  5. PROMETHAZINE [Concomitant]

REACTIONS (7)
  - Crohn^s disease [Unknown]
  - Inflammatory bowel disease [Unknown]
  - Emotional distress [Unknown]
  - Anal fistula [Unknown]
  - Headache [Unknown]
  - Epistaxis [Unknown]
  - Acute tonsillitis [Unknown]
